FAERS Safety Report 5478149-4 (Version None)
Quarter: 2007Q4

REPORT INFORMATION
  Report Type: 
  Country: None (occurrence: None)
  Receive Date: 20071005
  Receipt Date: 20070110
  Transmission Date: 20080405
  Serious: No
  Sender: FDA-Public Use
  Company Number: US-BRISTOL-MYERS SQUIBB COMPANY-13638697

PATIENT
  Age: 61 Year
  Sex: Female
  Weight: 90 kg

DRUGS (7)
  1. AVAPRO [Suspect]
     Indication: RENAL IMPAIRMENT
     Route: 048
  2. BYETTA [Suspect]
     Indication: TYPE 2 DIABETES MELLITUS
     Dosage: 5MCG 03-NOV-2006 - 14-DEC-2006
     Route: 058
     Dates: start: 20061215
  3. GLUCOPHAGE [Concomitant]
     Dates: end: 20061101
  4. VITAMIN B-12 [Concomitant]
  5. SIMVASTATIN [Concomitant]
     Dates: start: 20060901
  6. IRON [Concomitant]
  7. AVANDIA [Concomitant]
     Dates: end: 20061031

REACTIONS (4)
  - BLOOD GLUCOSE INCREASED [None]
  - DRUG INEFFECTIVE [None]
  - NASOPHARYNGITIS [None]
  - WEIGHT DECREASED [None]
